FAERS Safety Report 10920948 (Version 1)
Quarter: 2015Q1

REPORT INFORMATION
  Report Type: Spontaneous
  Country: US (occurrence: US)
  Receive Date: 20150317
  Receipt Date: 20150317
  Transmission Date: 20150721
  Serious: Yes (Hospitalization)
  Sender: FDA-Public Use
  Company Number: US-SA-2015SA031564

PATIENT
  Sex: Female

DRUGS (1)
  1. LANTUS [Suspect]
     Active Substance: INSULIN GLARGINE
     Indication: DIABETES MELLITUS
     Dosage: DOSE: 40 UNITS TWICE DAILY DOSE:40 UNIT(S)
     Route: 065

REACTIONS (3)
  - Memory impairment [Unknown]
  - Vertigo CNS origin [Unknown]
  - Drug administration error [Unknown]
